FAERS Safety Report 8042586-4 (Version None)
Quarter: 2012Q1

REPORT INFORMATION
  Report Type: 
  Country: None (occurrence: None)
  Receive Date: 20120112
  Receipt Date: 20120102
  Transmission Date: 20120608
  Serious: Yes (Hospitalization)
  Sender: FDA-Public Use
  Company Number: NL-AMGEN-NLDSP2011061012

PATIENT
  Age: 50 Year
  Sex: Female
  Weight: 76 kg

DRUGS (2)
  1. DICLOFENAC [Concomitant]
     Dosage: 3 TIMES 1
  2. ENBREL [Suspect]
     Indication: RHEUMATOID ARTHRITIS
     Dosage: 50 MG, WEEKLY
     Dates: start: 20110929

REACTIONS (7)
  - CAROTID ARTERY STENOSIS [None]
  - CHEST DISCOMFORT [None]
  - NAUSEA [None]
  - TRANSIENT ISCHAEMIC ATTACK [None]
  - INJECTION SITE REACTION [None]
  - HEADACHE [None]
  - FATIGUE [None]
